FAERS Safety Report 23246663 (Version 1)
Quarter: 2023Q4

REPORT INFORMATION
  Report Type: Spontaneous
  Country: CA (occurrence: CA)
  Receive Date: 20231130
  Receipt Date: 20231130
  Transmission Date: 20240109
  Serious: Yes (Other)
  Sender: FDA-Public Use
  Company Number: CA-NOVOPROD-1121497

PATIENT
  Weight: 35 kg

DRUGS (1)
  1. NIASTASE RT [Suspect]
     Active Substance: COAGULATION FACTOR VIIA RECOMBINANT HUMAN
     Indication: Alexander disease
     Dosage: RECEIVED CLOSE TO 200 MCG/KG DOSE

REACTIONS (5)
  - Dependence on oxygen therapy [Unknown]
  - Pulmonary embolism [Unknown]
  - Overdose [Recovered/Resolved]
  - Wrong product administered [Recovered/Resolved]
  - Product dispensing error [Recovered/Resolved]

NARRATIVE: CASE EVENT DATE: 20221101
